FAERS Safety Report 9226103 (Version 1)
Quarter: 2013Q2

REPORT INFORMATION
  Report Type: Report from Study
  Country: US (occurrence: US)
  Receive Date: 20130411
  Receipt Date: 20130411
  Transmission Date: 20140414
  Serious: Yes (Hospitalization, Other)
  Sender: FDA-Public Use
  Company Number: US-BRISTOL-MYERS SQUIBB COMPANY-17464405

PATIENT
  Age: 74 Year
  Sex: Female

DRUGS (22)
  1. CARBOPLATIN [Suspect]
     Indication: NON-SMALL CELL LUNG CANCER
     Dosage: AUC 6, CYL 2: 22FEB2013
     Route: 042
     Dates: start: 20130129
  2. TAXOL [Suspect]
     Indication: NON-SMALL CELL LUNG CANCER
     Route: 042
     Dates: start: 20130129
  3. NORVASC [Concomitant]
     Route: 048
  4. COREG [Concomitant]
     Route: 048
  5. WELCHOL [Concomitant]
     Route: 048
  6. DECADRON [Concomitant]
     Route: 048
  7. AGGRENOX [Concomitant]
  8. ULORIC [Concomitant]
     Route: 048
  9. IRON SULFATE [Concomitant]
     Route: 048
  10. ADVAIR [Concomitant]
  11. LASIX [Concomitant]
     Route: 048
  12. HYDRALAZINE [Concomitant]
  13. VICODIN [Concomitant]
     Dosage: THREE PER DAY
  14. LEVAQUIN [Concomitant]
     Route: 048
  15. EMLA [Concomitant]
  16. ATIVAN [Concomitant]
     Dosage: EVERY 4 HOURS PRN
     Route: 048
  17. MAGIC MOUTHWASH [Concomitant]
  18. PROTONIX [Concomitant]
     Route: 048
  19. MICRO-K [Concomitant]
     Route: 048
  20. PREDNISONE [Concomitant]
  21. ACCUPRIL [Concomitant]
     Route: 048
  22. ZANTAC [Concomitant]
     Route: 048

REACTIONS (4)
  - Renal failure acute [Unknown]
  - Hypotension [Recovered/Resolved]
  - Diarrhoea [Unknown]
  - Dehydration [Unknown]
